FAERS Safety Report 6996929-0 (Version None)
Quarter: 2010Q3

REPORT INFORMATION
  Report Type: 
  Country: None (occurrence: None)
  Receive Date: 20100918
  Receipt Date: 20090831
  Transmission Date: 20110219
  Serious: No
  Sender: FDA-Public Use
  Company Number: US-WYE-H10788609

PATIENT
  Age: 60 Year
  Sex: Female

DRUGS (1)
  1. PRISTIQ [Suspect]
     Indication: MAJOR DEPRESSION
     Route: 048
     Dates: start: 20090101, end: 20090701

REACTIONS (3)
  - BLOOD PRESSURE INCREASED [None]
  - CONDITION AGGRAVATED [None]
  - OEDEMA PERIPHERAL [None]
